FAERS Safety Report 22531455 (Version 2)
Quarter: 2023Q2

REPORT INFORMATION
  Report Type: Report from Study
  Country: US (occurrence: US)
  Receive Date: 20230607
  Receipt Date: 20230609
  Transmission Date: 20230722
  Serious: No
  Sender: FDA-Public Use
  Company Number: US-002147023-NVSC2023US125903

PATIENT
  Sex: Male

DRUGS (11)
  1. COSENTYX [Suspect]
     Active Substance: SECUKINUMAB
     Indication: Psoriasis
     Dosage: 300 MG, QMO
     Route: 058
     Dates: start: 20180425
  2. COSENTYX [Suspect]
     Active Substance: SECUKINUMAB
     Dosage: 150 MG, QMO
     Route: 065
  3. COSENTYX [Suspect]
     Active Substance: SECUKINUMAB
     Dosage: UNK (LAST INJECTED ON 2/17)
     Route: 065
  4. COSENTYX [Suspect]
     Active Substance: SECUKINUMAB
     Dosage: 300 MG
     Route: 058
  5. BUSPIRONE [Concomitant]
     Active Substance: BUSPIRONE HYDROCHLORIDE
     Indication: Psoriasis
     Dosage: UNK
     Route: 065
  6. HYDROCORTISONE [Concomitant]
     Active Substance: HYDROCORTISONE
     Indication: Psoriasis
     Dosage: UNK (SINCE JUNE AS NEEDED)
     Route: 065
  7. CICLOPIROX [Concomitant]
     Active Substance: CICLOPIROX
     Indication: Psoriasis
     Dosage: UNK
     Route: 065
  8. FLUCONAZOLE [Concomitant]
     Active Substance: FLUCONAZOLE
     Indication: Psoriasis
     Dosage: UNK
     Route: 065
  9. KETOCONAZOLE [Concomitant]
     Active Substance: KETOCONAZOLE
     Indication: Psoriasis
     Dosage: UNK
     Route: 065
  10. BETAMETHASONE DIPROPIONATE [Concomitant]
     Active Substance: BETAMETHASONE DIPROPIONATE
     Indication: Psoriasis
     Dosage: UNK (CREAM)
     Route: 065
  11. BETAMETHASONE DIPROPIONATE [Concomitant]
     Active Substance: BETAMETHASONE DIPROPIONATE
     Dosage: UNK (SOLUTION)
     Route: 065

REACTIONS (13)
  - Psoriasis [Unknown]
  - Pruritus [Unknown]
  - Skin exfoliation [Unknown]
  - Scab [Unknown]
  - Erythema [Unknown]
  - Rash [Unknown]
  - Dry skin [Unknown]
  - Dermatitis [Unknown]
  - Ear disorder [Unknown]
  - Seborrhoeic dermatitis [Unknown]
  - Macule [Unknown]
  - Papule [Unknown]
  - Drug ineffective [Unknown]
